FAERS Safety Report 5075520-X (Version None)
Quarter: 2006Q3

REPORT INFORMATION
  Report Type: 
  Country: None (occurrence: None)
  Receive Date: 20060804
  Receipt Date: 20060725
  Transmission Date: 20061208
  Serious: Yes (Life-Threatening, Hospitalization)
  Sender: FDA-Public Use
  Company Number: 2006092316

PATIENT
  Age: 63 Year
  Sex: Male

DRUGS (2)
  1. LYRICA [Suspect]
     Indication: NEURALGIA
     Dosage: 150 MG (75 MG, 2 IN 1 D), ORAL
     Route: 048
     Dates: start: 20060201, end: 20060426
  2. HEPARIN [Concomitant]

REACTIONS (16)
  - ABDOMINAL DISTENSION [None]
  - ACIDOSIS [None]
  - ASTHENIA [None]
  - BODY TEMPERATURE DECREASED [None]
  - BRADYCARDIA [None]
  - DIZZINESS [None]
  - DYSARTHRIA [None]
  - FATIGUE [None]
  - HYPERCAPNIA [None]
  - HYPOTENSION [None]
  - LEUKOPENIA [None]
  - MUSCLE SPASTICITY [None]
  - OEDEMA [None]
  - PALLOR [None]
  - THROMBOCYTOPENIA [None]
  - UROSEPSIS [None]
